FAERS Safety Report 5759829-X (Version None)
Quarter: 2008Q2

REPORT INFORMATION
  Report Type: 
  Country: None (occurrence: None)
  Receive Date: 20080605
  Receipt Date: 20080527
  Transmission Date: 20081010
  Serious: Yes (Other)
  Sender: FDA-Public Use
  Company Number: PHHY2008IT09176

PATIENT
  Sex: Female

DRUGS (5)
  1. ZOMETA [Suspect]
     Indication: MULTIPLE MYELOMA
     Dosage: 4 MG/ MONTH
     Route: 042
     Dates: start: 20050501, end: 20071231
  2. DEXAMETHASONE TAB [Concomitant]
     Dosage: 15 MG/ DAY
  3. THALIDOMIDE [Concomitant]
  4. VINCRISTINE [Concomitant]
  5. ADRIBLASTIN [Concomitant]

REACTIONS (5)
  - BONE DISORDER [None]
  - FISTULA [None]
  - MASTICATION DISORDER [None]
  - OSTEONECROSIS [None]
  - TOOTH DISORDER [None]
